FAERS Safety Report 4365448-2 (Version None)
Quarter: 2004Q2

REPORT INFORMATION
  Report Type: 
  Country: None (occurrence: None)
  Receive Date: 20040525
  Receipt Date: 20040525
  Transmission Date: 20050107
  Serious: Yes (Life-Threatening, Hospitalization)
  Sender: FDA-Public Use
  Company Number: None

PATIENT
  Age: 37 Year
  Sex: Female
  Weight: 107.0489 kg

DRUGS (7)
  1. CYTARABINE [Suspect]
     Indication: ACUTE MYELOID LEUKAEMIA
     Dosage: HIGH DOSE
  2. BARIUM [Suspect]
  3. SPIRONOLACTONE [Concomitant]
  4. PAXIL CR [Concomitant]
  5. PREVACID [Concomitant]
  6. POTASSIUM [Concomitant]
  7. NIFEDIPINE [Concomitant]

REACTIONS (6)
  - BACTERIA STOOL IDENTIFIED [None]
  - BLOOD CREATININE INCREASED [None]
  - BLOOD PRESSURE IMMEASURABLE [None]
  - CAECITIS [None]
  - FEBRILE NEUTROPENIA [None]
  - SOMNOLENCE [None]
